FAERS Safety Report 13703627 (Version 1)
Quarter: 2017Q2

REPORT INFORMATION
  Report Type: Spontaneous
  Country: US (occurrence: US)
  Receive Date: 20170629
  Receipt Date: 20170629
  Transmission Date: 20170830
  Serious: No
  Sender: FDA-Public Use
  Company Number: US-IPSEN BIOPHARMACEUTICALS, INC.-2015-6676

PATIENT
  Age: 51 Year
  Sex: Female

DRUGS (4)
  1. DYSPORT [Suspect]
     Active Substance: ABOBOTULINUMTOXINA
     Indication: SKIN WRINKLING
  2. LEXAPRO [Concomitant]
     Active Substance: ESCITALOPRAM OXALATE
     Indication: DEPRESSION
  3. DYSPORT [Suspect]
     Active Substance: ABOBOTULINUMTOXINA
     Indication: PRODUCT USE IN UNAPPROVED INDICATION
  4. DYSPORT [Suspect]
     Active Substance: ABOBOTULINUMTOXINA
     Indication: SKIN WRINKLING
     Dosage: 80 UNITS
     Route: 030
     Dates: start: 20150718, end: 20150718

REACTIONS (11)
  - Vertigo [Recovering/Resolving]
  - Muscular weakness [Recovering/Resolving]
  - Overdose [Unknown]
  - Dry eye [Recovering/Resolving]
  - Nausea [Recovering/Resolving]
  - Eye pain [Recovering/Resolving]
  - Insomnia [Recovering/Resolving]
  - Decreased appetite [Recovering/Resolving]
  - Headache [Recovering/Resolving]
  - Eyelid ptosis [Recovering/Resolving]
  - Eyelid retraction [Recovering/Resolving]

NARRATIVE: CASE EVENT DATE: 20150719
